FAERS Safety Report 17000178 (Version 1)
Quarter: 2019Q4

REPORT INFORMATION
  Report Type: Spontaneous
  Country: US (occurrence: US)
  Receive Date: 20191106
  Receipt Date: 20191106
  Transmission Date: 20200122
  Serious: No
  Sender: FDA-Public Use
  Company Number: US-009507513-1910USA010006

PATIENT
  Age: 54 Year
  Sex: Male
  Weight: 207.71 kg

DRUGS (13)
  1. MIFEPRISTONE [Suspect]
     Active Substance: MIFEPRISTONE
     Indication: CUSHING^S SYNDROME
     Dosage: 300 MILLIGRAM TABLET DAILY
     Route: 048
     Dates: start: 20190723, end: 201908
  2. COZAAR [Suspect]
     Active Substance: LOSARTAN POTASSIUM
     Dosage: UNK
     Route: 048
     Dates: end: 2019
  3. SPIRONOLACTONE. [Concomitant]
     Active Substance: SPIRONOLACTONE
  4. HUMULIN NOS [Concomitant]
     Active Substance: INSULIN HUMAN
  5. KEFLEX [Concomitant]
     Active Substance: CEPHALEXIN
  6. CRESTOR [Concomitant]
     Active Substance: ROSUVASTATIN CALCIUM
  7. GABAPENTIN. [Concomitant]
     Active Substance: GABAPENTIN
  8. MIFEPRISTONE [Suspect]
     Active Substance: MIFEPRISTONE
     Dosage: 600 MILLIGRAM, QD
     Route: 048
     Dates: start: 201908
  9. NORTRIPTYLINE [Concomitant]
     Active Substance: NORTRIPTYLINE
  10. ROPINIROLE. [Concomitant]
     Active Substance: ROPINIROLE
  11. TOUJEO [Concomitant]
     Active Substance: INSULIN GLARGINE
  12. TRADJENTA [Concomitant]
     Active Substance: LINAGLIPTIN
  13. FUROSEMIDE. [Concomitant]
     Active Substance: FUROSEMIDE

REACTIONS (8)
  - Flatulence [Unknown]
  - Abdominal discomfort [Unknown]
  - Blood pressure decreased [Recovered/Resolved]
  - Oedema [Unknown]
  - Myalgia [Recovered/Resolved]
  - Pain [Recovered/Resolved]
  - Abdominal distension [Unknown]
  - Peripheral swelling [Unknown]

NARRATIVE: CASE EVENT DATE: 2019
